FAERS Safety Report 4559418-9 (Version None)
Quarter: 2005Q1

REPORT INFORMATION
  Report Type: 
  Country: None (occurrence: None)
  Receive Date: 20050119
  Receipt Date: 20050107
  Transmission Date: 20050727
  Serious: Yes (Other)
  Sender: FDA-Public Use
  Company Number: 2005011004

PATIENT
  Age: 73 Year
  Sex: Female

DRUGS (5)
  1. ATORVASTATIN [Suspect]
     Indication: TRANSIENT ISCHAEMIC ATTACK
     Dosage: 10 MG (10 MG, 1 IN 1 D), ORAL
     Route: 048
     Dates: start: 20010101
  2. NORMACOL             (FRANGULA EXTRACT, STERCULIA) [Concomitant]
  3. WARFARIN [Concomitant]
  4. DIGOXIN [Concomitant]
  5. LOSARTAN [Concomitant]

REACTIONS (2)
  - DYSPEPSIA [None]
  - GASTROOESOPHAGEAL REFLUX DISEASE [None]
